FAERS Safety Report 6123405-X (Version None)
Quarter: 2009Q1

REPORT INFORMATION
  Report Type: 
  Country: None (occurrence: None)
  Receive Date: 20090318
  Receipt Date: 20090304
  Transmission Date: 20090719
  Serious: Yes (Other)
  Sender: FDA-Public Use
  Company Number: DE-PFIZER INC-2009177755

PATIENT

DRUGS (1)
  1. LYRICA [Suspect]
     Indication: POLYNEUROPATHY
     Dosage: 175 MG, 1X/DAY
     Route: 048
     Dates: start: 20090101

REACTIONS (2)
  - DERMATOMYOSITIS [None]
  - FACE OEDEMA [None]
